FAERS Safety Report 9292823 (Version 1)
Quarter: 2013Q2

REPORT INFORMATION
  Report Type: Report from Study
  Country: CA (occurrence: CA)
  Receive Date: 20130516
  Receipt Date: 20130516
  Transmission Date: 20140414
  Serious: Yes (Other)
  Sender: FDA-Public Use
  Company Number: CA-UCBSA-068039

PATIENT
  Age: 67 Year
  Sex: Female

DRUGS (12)
  1. CIMZIA [Suspect]
     Indication: RHEUMATOID ARTHRITIS
     Route: 058
     Dates: start: 20100112, end: 2012
  2. CIMZIA [Suspect]
     Indication: RHEUMATOID ARTHRITIS
     Route: 058
     Dates: start: 2013, end: 20130416
  3. FOLIC ACID [Concomitant]
     Route: 048
  4. CALCIUM [Concomitant]
     Route: 048
  5. METHOTREXATE [Concomitant]
     Indication: RHEUMATOID ARTHRITIS
     Dosage: WEEKLY
     Route: 058
     Dates: start: 200809
  6. SULFASALAZINE [Concomitant]
     Indication: RHEUMATOID ARTHRITIS
     Dosage: NO. OF INTAKES:PID
     Route: 048
     Dates: start: 200811
  7. PLAQUENIL [Concomitant]
     Indication: RHEUMATOID ARTHRITIS
     Route: 048
     Dates: start: 200811
  8. NABUMETONE [Concomitant]
  9. CITALOPRAM [Concomitant]
  10. OXYCODONE [Concomitant]
     Indication: PAIN
     Route: 048
  11. PARIET [Concomitant]
     Route: 048
  12. VITAMIN D [Concomitant]
     Route: 048

REACTIONS (4)
  - Lymphoma [Not Recovered/Not Resolved]
  - Cystitis [Recovered/Resolved]
  - Neck mass [Not Recovered/Not Resolved]
  - Pain [Not Recovered/Not Resolved]
